FAERS Safety Report 24760865 (Version 1)
Quarter: 2024Q4

REPORT INFORMATION
  Report Type: Spontaneous
  Country: US (occurrence: None)
  Receive Date: 20241217
  Receipt Date: 20241217
  Transmission Date: 20250115
  Serious: No
  Sender: Public
  Company Number: None

PATIENT
  Age: 64 Year
  Sex: Female
  Weight: 74.84 kg

DRUGS (1)
  1. PEMGARDA [Suspect]
     Active Substance: PEMIVIBART
     Indication: Immune system disorder
     Dosage: OTHER FREQUENCY : Q12WEEKS;?
     Route: 041
     Dates: start: 20241212

REACTIONS (2)
  - Headache [None]
  - Infusion related reaction [None]

NARRATIVE: CASE EVENT DATE: 20241212
